FAERS Safety Report 8115319-0 (Version None)
Quarter: 2012Q1

REPORT INFORMATION
  Report Type: 
  Country: None (occurrence: None)
  Receive Date: 20120206
  Receipt Date: 20120125
  Transmission Date: 20120608
  Serious: Yes (Other)
  Sender: FDA-Public Use
  Company Number: US-JNJFOC-20120112611

PATIENT
  Age: 79 Year
  Sex: Female

DRUGS (4)
  1. ACETAMINOPHEN [Suspect]
     Indication: ARTHRALGIA
     Route: 048
     Dates: start: 20110701, end: 20120124
  2. ACETAMINOPHEN [Suspect]
     Route: 048
  3. VITAMIN D [Concomitant]
     Indication: MEDICAL DIET
     Dosage: ONE 2-3X/WEEK
     Route: 065
     Dates: start: 20110101
  4. MULTI-VITAMINS [Concomitant]
     Indication: MEDICAL DIET
     Dosage: ONE 1-2X/WEEK
     Route: 065

REACTIONS (1)
  - HALLUCINATION [None]
